FAERS Safety Report 8992642 (Version 1)
Quarter: 2013Q1

REPORT INFORMATION
  Report Type: Report from Study
  Country: DE (occurrence: DE)
  Receive Date: 20130101
  Receipt Date: 20130101
  Transmission Date: 20140127
  Serious: Yes (Hospitalization)
  Sender: FDA-Public Use
  Company Number: PHHO2011DE09111

PATIENT
  Age: 9 Year
  Sex: Female
  Weight: 30.7 kg

DRUGS (10)
  1. PLACEBO [Suspect]
     Indication: JUVENILE IDIOPATHIC ARTHRITIS
     Dosage: UNK
     Dates: start: 20101115
  2. PLACEBO [Suspect]
     Dosage: UNK
     Dates: start: 20110404
  3. PLACEBO [Suspect]
     Dosage: UNK
     Dates: start: 20110502
  4. PLACEBO [Suspect]
     Dosage: UNK
     Dates: start: 20110530
  5. ACZ885 [Suspect]
     Indication: JUVENILE IDIOPATHIC ARTHRITIS
     Dosage: 0.77 ML, UNK
     Dates: start: 20101115
  6. ACZ885 [Suspect]
     Dosage: 0.77 ML, UNK
     Dates: start: 20101214
  7. ACZ885 [Suspect]
     Dosage: 0.77 ML, UNK
     Dates: start: 20110107
  8. ACZ885 [Suspect]
     Dosage: 0.77 ML, UNK
     Dates: start: 20110207
  9. ACZ885 [Suspect]
     Dosage: 0.77 ML, UNK
     Dates: end: 20110307
  10. METHOTREXATE [Concomitant]
     Indication: JUVENILE IDIOPATHIC ARTHRITIS
     Dosage: 15 MG, QW
     Dates: start: 20100528

REACTIONS (1)
  - Upper limb fracture [Recovered/Resolved]
